FAERS Safety Report 9950610 (Version 1)
Quarter: 2014Q1

REPORT INFORMATION
  Report Type: Spontaneous
  Country: US (occurrence: US)
  Receive Date: 20140304
  Receipt Date: 20140304
  Transmission Date: 20141002
  Serious: No
  Sender: FDA-Public Use
  Company Number: US-AMGEN-USASP2013090661

PATIENT
  Age: 59 Year
  Sex: Female
  Weight: 61.22 kg

DRUGS (1)
  1. ENBREL [Suspect]
     Indication: PSORIATIC ARTHROPATHY
     Dosage: UNK
     Route: 058
     Dates: start: 201308

REACTIONS (3)
  - Abdominal distension [Unknown]
  - Erythema [Unknown]
  - Pruritus [Unknown]
